FAERS Safety Report 8318999-X (Version None)
Quarter: 2012Q2

REPORT INFORMATION
  Report Type: 
  Country: None (occurrence: None)
  Receive Date: 20120427
  Receipt Date: 20120419
  Transmission Date: 20120825
  Serious: Yes (Hospitalization)
  Sender: FDA-Public Use
  Company Number: FR-BAYER-2012-038447

PATIENT
  Age: 30 Year
  Sex: Female
  Weight: 113 kg

DRUGS (1)
  1. ESTRADIOL VALERATE/DIENOGEST [Suspect]
     Dosage: UNK
     Dates: start: 20110301

REACTIONS (5)
  - INTRACRANIAL PRESSURE INCREASED [None]
  - HEMIPLEGIA [None]
  - CAROTID ARTERY STENOSIS [None]
  - CEREBROVASCULAR ACCIDENT [None]
  - MALAISE [None]
